FAERS Safety Report 16880113 (Version 4)
Quarter: 2020Q1

REPORT INFORMATION
  Report Type: Spontaneous
  Country: US (occurrence: US)
  Receive Date: 20191003
  Receipt Date: 20200117
  Transmission Date: 20200409
  Serious: Yes (Life-Threatening, Other)
  Sender: FDA-Public Use
  Company Number: US-SHIRE-US201932487

PATIENT
  Sex: Female

DRUGS (1)
  1. NATPARA (PARATHYROID HORMONE) [Suspect]
     Active Substance: PARATHYROID HORMONE
     Indication: HYPOPARATHYROIDISM
     Dosage: 36.75 MICROGRAM, 1X/DAY:QD, MCG IN THE MORNING, 17.5 MCG IN THE EVENING
     Route: 065

REACTIONS (3)
  - Wrong technique in product usage process [Unknown]
  - Hypocalcaemia [Unknown]
  - Recalled product [Unknown]
